FAERS Safety Report 24327291 (Version 1)
Quarter: 2024Q3

REPORT INFORMATION
  Report Type: Spontaneous
  Country: JP (occurrence: JP)
  Receive Date: 20240917
  Receipt Date: 20240917
  Transmission Date: 20241016
  Serious: No
  Sender: PFIZER
  Company Number: JP-PFIZER INC-PV202400116204

PATIENT
  Age: 5 Year

DRUGS (2)
  1. GENOTROPIN [Suspect]
     Active Substance: SOMATROPIN
     Dosage: 0.4 MG X 11 DAYS
     Route: 058
     Dates: start: 20240821
  2. GENOTROPIN [Suspect]
     Active Substance: SOMATROPIN
     Dosage: 0.3 MG X 3 DAYS
     Route: 058

REACTIONS (4)
  - Injection site pain [Unknown]
  - Pyrexia [Unknown]
  - Intentional dose omission [Unknown]
  - Off label use [Unknown]
